FAERS Safety Report 19186044 (Version 6)
Quarter: 2023Q1

REPORT INFORMATION
  Report Type: Spontaneous
  Country: GB (occurrence: GB)
  Receive Date: 20210427
  Receipt Date: 20230209
  Transmission Date: 20230418
  Serious: Yes (Hospitalization, Other)
  Sender: FDA-Public Use
  Company Number: GB-ROCHE-1757222

PATIENT
  Age: 57 Year
  Sex: Female

DRUGS (101)
  1. DOCETAXEL [Suspect]
     Active Substance: DOCETAXEL
     Indication: Breast cancer metastatic
     Dosage: 130 MG, TIW (DATE OF LAST ADMINISTERED DOSE: 03 SEP 2015)
     Route: 042
     Dates: start: 20150507, end: 20150903
  2. ANASTROZOLE [Suspect]
     Active Substance: ANASTROZOLE
     Indication: Breast cancer
     Dosage: 1 MG, QD (1/DAY)
     Route: 048
     Dates: start: 20151021, end: 20171027
  3. XELODA [Suspect]
     Active Substance: CAPECITABINE
     Indication: Breast cancer
     Dosage: 1650 MG (0.5 DAY, TABLET)
     Route: 048
     Dates: start: 20160901, end: 20160914
  4. XELODA [Suspect]
     Active Substance: CAPECITABINE
     Dosage: 1650 MG (0.5 DAY)
     Route: 048
  5. XELODA [Suspect]
     Active Substance: CAPECITABINE
     Dosage: 3300 MG, QD
     Route: 048
     Dates: start: 20160901, end: 20160914
  6. VINORELBINE TARTRATE [Suspect]
     Active Substance: VINORELBINE TARTRATE
     Indication: Breast cancer
     Dosage: 100 MG, QD
     Route: 048
     Dates: start: 20160901, end: 20160930
  7. VINORELBINE TARTRATE [Suspect]
     Active Substance: VINORELBINE TARTRATE
     Dosage: 100 MG, QD
     Route: 065
     Dates: start: 20160901, end: 20161028
  8. VINORELBINE TARTRATE [Suspect]
     Active Substance: VINORELBINE TARTRATE
     Dosage: 100 MG, QD (1/DAY)
     Route: 048
     Dates: start: 20161111
  9. VINORELBINE TARTRATE [Suspect]
     Active Substance: VINORELBINE TARTRATE
     Dosage: 100 MG, QD (1/DAY) (LAST DOSE DATE ADMINISTRATION: 28 OCT 2016)
     Route: 048
     Dates: start: 20161028, end: 20161028
  10. TAXOTERE [Suspect]
     Active Substance: DOCETAXEL
     Indication: Breast cancer
     Dosage: 130 MG, Q3W (EVERY 3 WEEKS)
     Route: 042
     Dates: start: 20150507, end: 20150903
  11. TAXOTERE [Suspect]
     Active Substance: DOCETAXEL
     Dosage: 100 MG, QD
     Route: 042
     Dates: start: 20160128, end: 20160128
  12. TAXOTERE [Suspect]
     Active Substance: DOCETAXEL
     Dosage: 100 MG, QD
     Route: 042
     Dates: start: 20161111
  13. TAXOTERE [Suspect]
     Active Substance: DOCETAXEL
     Dosage: 130 MG, Q3W
     Route: 042
     Dates: start: 20150903
  14. TAXOTERE [Suspect]
     Active Substance: DOCETAXEL
     Dosage: 357 MG, TIW
     Route: 042
     Dates: start: 20150527, end: 20160630
  15. HERCEPTIN [Suspect]
     Active Substance: TRASTUZUMAB
     Indication: Breast cancer metastatic
     Dosage: 462 MG LOADING DOSE 3/WEEK (CV)
     Route: 042
     Dates: start: 20150506, end: 20150506
  16. HERCEPTIN [Suspect]
     Active Substance: TRASTUZUMAB
     Dosage: 1071 MG, QW (357 MG, EVERY 3 WEEKS, DATE OF LAST ADMINISTERED DOSE: 30-JUN-2016)
     Route: 042
     Dates: start: 20150527, end: 20160630
  17. ADO-TRASTUZUMAB EMTANSINE [Suspect]
     Active Substance: ADO-TRASTUZUMAB EMTANSINE
     Indication: Breast cancer
     Dosage: 462 MG, TIW
     Route: 042
     Dates: start: 20150506, end: 20150506
  18. ADO-TRASTUZUMAB EMTANSINE [Suspect]
     Active Substance: ADO-TRASTUZUMAB EMTANSINE
     Dosage: 357 MG, QW
     Route: 042
     Dates: start: 20150527, end: 20160630
  19. ADO-TRASTUZUMAB EMTANSINE [Suspect]
     Active Substance: ADO-TRASTUZUMAB EMTANSINE
     Dosage: 224 MG, TIW
     Route: 042
     Dates: start: 20170620, end: 20170630
  20. ADO-TRASTUZUMAB EMTANSINE [Suspect]
     Active Substance: ADO-TRASTUZUMAB EMTANSINE
     Dosage: 224 MG, TIW (EVERY 3 WEEKS)
     Route: 042
     Dates: start: 20170620, end: 20170830
  21. ADO-TRASTUZUMAB EMTANSINE [Suspect]
     Active Substance: ADO-TRASTUZUMAB EMTANSINE
     Dosage: 357 MG (TWO WEEKS)
     Route: 065
     Dates: start: 20170620
  22. ADO-TRASTUZUMAB EMTANSINE [Suspect]
     Active Substance: ADO-TRASTUZUMAB EMTANSINE
     Dosage: 1 OT QW (20 JUN 2017)
     Route: 042
     Dates: end: 20170830
  23. PERTUZUMAB [Suspect]
     Active Substance: PERTUZUMAB
     Indication: Breast cancer
     Dosage: 840 MG, TIW (LOADING DOSE)
     Route: 042
     Dates: start: 20150507, end: 20150507
  24. PERTUZUMAB [Suspect]
     Active Substance: PERTUZUMAB
     Dosage: 2520 MG, QW (LOADING DOSE)
     Route: 042
     Dates: start: 20150507, end: 20150507
  25. PERTUZUMAB [Suspect]
     Active Substance: PERTUZUMAB
     Dosage: 357 MG (2 WEEKS)
     Route: 065
     Dates: start: 20150527, end: 20160630
  26. PERTUZUMAB [Suspect]
     Active Substance: PERTUZUMAB
     Dosage: 420 MG, TIW
     Route: 042
     Dates: start: 20150527, end: 20160630
  27. EXEMESTANE [Suspect]
     Active Substance: EXEMESTANE
     Indication: Breast cancer metastatic
     Dosage: 25 MG, QD (1/DAY)
     Route: 048
     Dates: start: 20090921
  28. EXEMESTANE [Suspect]
     Active Substance: EXEMESTANE
     Indication: Breast cancer
     Dosage: 25 MG, QD
     Route: 048
     Dates: start: 20090921
  29. EXEMESTANE [Suspect]
     Active Substance: EXEMESTANE
     Dosage: 25 MG, QD (1/DAY)
     Route: 048
     Dates: start: 20150328
  30. EXEMESTANE [Suspect]
     Active Substance: EXEMESTANE
     Dosage: 1 DF, QD
     Route: 048
     Dates: start: 201607, end: 20160921
  31. EXEMESTANE [Suspect]
     Active Substance: EXEMESTANE
     Dosage: 25 MG, QD (1/DAY)
     Route: 065
     Dates: start: 20151021
  32. EXEMESTANE [Suspect]
     Active Substance: EXEMESTANE
     Dosage: 25 MG, QD (1/DAY)
     Route: 048
  33. PERJETA [Suspect]
     Active Substance: PERTUZUMAB
     Indication: Breast cancer
     Dosage: 840 MG, Q3W (DATE OF LAST ADMINISTRATION DOSE 07 MAY 2015)
     Route: 042
     Dates: start: 20150507, end: 20150507
  34. PERJETA [Suspect]
     Active Substance: PERTUZUMAB
     Dosage: 2520 MG, QD (LOADING DOSE)
     Route: 042
     Dates: start: 20150507, end: 20150507
  35. PERJETA [Suspect]
     Active Substance: PERTUZUMAB
     Dosage: 420 MG, TIW
     Route: 042
     Dates: start: 20150527, end: 20160630
  36. PERJETA [Suspect]
     Active Substance: PERTUZUMAB
     Dosage: 357 MG, EVERY 3 WEEKS
     Route: 042
     Dates: start: 20150527, end: 20160630
  37. PERJETA [Suspect]
     Active Substance: PERTUZUMAB
     Dosage: 420 MG, Q3W
     Route: 065
     Dates: start: 20150527, end: 20160630
  38. TRASTUZUMAB [Suspect]
     Active Substance: TRASTUZUMAB
     Indication: Breast cancer
     Dosage: 462 MG, TIW (LOADING DOSE)
     Route: 042
     Dates: start: 20150506, end: 20150506
  39. TRASTUZUMAB [Suspect]
     Active Substance: TRASTUZUMAB
     Dosage: 357 MG, TIW
     Route: 042
     Dates: start: 20150527, end: 20160630
  40. TRASTUZUMAB [Suspect]
     Active Substance: TRASTUZUMAB
     Dosage: 357 MG, Q3W
     Route: 042
     Dates: start: 20170620
  41. TRASTUZUMAB [Suspect]
     Active Substance: TRASTUZUMAB
     Dosage: 1071 MG, Q3W
     Route: 042
     Dates: start: 20150527, end: 20160630
  42. ARIMIDEX [Suspect]
     Active Substance: ANASTROZOLE
     Indication: Breast cancer metastatic
     Dosage: 1 MG, QD (ONCE A DAY)
     Route: 065
     Dates: start: 20151021
  43. AROMASIN [Suspect]
     Active Substance: EXEMESTANE
     Indication: Breast cancer metastatic
     Dosage: 25 MG
     Route: 048
     Dates: start: 20150328
  44. NAVELBINE [Suspect]
     Active Substance: VINORELBINE TARTRATE
     Indication: Product used for unknown indication
     Dosage: 100 MG
     Route: 048
     Dates: start: 20160901, end: 20160930
  45. VINORELBINE [Suspect]
     Active Substance: VINORELBINE TARTRATE
     Indication: Breast cancer
     Dosage: 100 MG, QD
     Route: 048
     Dates: start: 20160901, end: 20160930
  46. VINORELBINE [Suspect]
     Active Substance: VINORELBINE TARTRATE
     Dosage: 100 MG, QD
     Route: 048
     Dates: start: 20161028, end: 20161028
  47. VINORELBINE [Suspect]
     Active Substance: VINORELBINE TARTRATE
     Dosage: 100 MG, QD
     Route: 065
     Dates: start: 20161111
  48. CAPECITABINE [Suspect]
     Active Substance: CAPECITABINE
     Indication: Breast cancer
     Dosage: 3300 MG
     Route: 048
     Dates: start: 20160901, end: 20160914
  49. CAPECITABINE [Suspect]
     Active Substance: CAPECITABINE
     Dosage: 1650 MG
     Route: 048
     Dates: start: 20150901, end: 20160914
  50. AMITRIPTYLINE [Concomitant]
     Active Substance: AMITRIPTYLINE
     Indication: Product used for unknown indication
     Dosage: 10 MG, (ONCE A DAY)
     Route: 048
     Dates: start: 201603
  51. LEVETIRACETAM [Concomitant]
     Active Substance: LEVETIRACETAM
     Indication: Epilepsy
     Dosage: 250 MG
     Route: 048
     Dates: start: 20160727, end: 20161027
  52. LEVETIRACETAM [Concomitant]
     Active Substance: LEVETIRACETAM
     Dosage: 2 DOSAGE FORM, Q12H (2/DAY)
     Route: 048
     Dates: start: 20160727, end: 20160810
  53. LEVETIRACETAM [Concomitant]
     Active Substance: LEVETIRACETAM
     Dosage: 250 MG
     Route: 048
     Dates: start: 20160727, end: 20171027
  54. LEVETIRACETAM [Concomitant]
     Active Substance: LEVETIRACETAM
     Dosage: UNK UNK, Q12H
     Route: 048
     Dates: start: 20160811, end: 20161027
  55. DEXAMETHASONE [Concomitant]
     Active Substance: DEXAMETHASONE
     Indication: Premedication
     Dosage: 8 MG
     Route: 048
     Dates: start: 20150504, end: 20150904
  56. DEXAMETHASONE [Concomitant]
     Active Substance: DEXAMETHASONE
     Dosage: 2 MG
     Route: 048
     Dates: start: 20150504, end: 20150904
  57. DEXAMETHASONE [Concomitant]
     Active Substance: DEXAMETHASONE
     Dosage: 1 DF, QD
     Route: 048
     Dates: start: 20150506, end: 20150717
  58. DEXAMETHASONE [Concomitant]
     Active Substance: DEXAMETHASONE
     Dosage: 1 DF, QD (1/DAY)
     Route: 048
     Dates: start: 201607, end: 20160921
  59. DEXAMETHASONE [Concomitant]
     Active Substance: DEXAMETHASONE
     Dosage: 1 DOSAGE FORM, QD (1/DAY)
     Route: 048
     Dates: start: 20160713, end: 201607
  60. DEXAMETHASONE [Concomitant]
     Active Substance: DEXAMETHASONE
     Dosage: 2 MG, QD
     Route: 048
     Dates: start: 20160713, end: 20161004
  61. DEXAMETHASONE [Concomitant]
     Active Substance: DEXAMETHASONE
     Dosage: 1 DF, QD
     Route: 048
     Dates: start: 20161004, end: 20161123
  62. DEXAMETHASONE [Concomitant]
     Active Substance: DEXAMETHASONE
     Dosage: 2 MG
     Route: 048
     Dates: start: 20161004, end: 20161123
  63. DEXAMETHASONE [Concomitant]
     Active Substance: DEXAMETHASONE
     Dosage: 2 MG
     Route: 065
     Dates: start: 20161014
  64. DEXAMETHASONE [Concomitant]
     Active Substance: DEXAMETHASONE
     Dosage: 1 DF, QD (1/DAY)
     Route: 048
     Dates: start: 20161123, end: 20161130
  65. DEXAMETHASONE [Concomitant]
     Active Substance: DEXAMETHASONE
     Dosage: 1 DF, QD (1/DAY)
     Route: 048
     Dates: start: 201612, end: 20170510
  66. DEXAMETHASONE [Concomitant]
     Active Substance: DEXAMETHASONE
     Dosage: 1 DF, QD (1/DAY)
     Route: 048
     Dates: start: 20161130, end: 20161201
  67. DEXAMETHASONE [Concomitant]
     Active Substance: DEXAMETHASONE
     Dosage: 8 DF, QD
     Route: 048
     Dates: start: 20161130, end: 20161201
  68. DEXAMETHASONE [Concomitant]
     Active Substance: DEXAMETHASONE
     Dosage: 1 DF, QD (1/DAY)
     Route: 048
     Dates: start: 201612, end: 201612
  69. DEXAMETHASONE [Concomitant]
     Active Substance: DEXAMETHASONE
     Dosage: 2 DF, QD
     Route: 048
     Dates: start: 201612, end: 20170510
  70. DEXAMETHASONE [Concomitant]
     Active Substance: DEXAMETHASONE
     Dosage: 1 DF, QD
     Route: 048
     Dates: start: 20170216, end: 20170830
  71. CALCIUM CARBONATE\CHOLECALCIFEROL [Concomitant]
     Active Substance: CALCIUM CARBONATE\CHOLECALCIFEROL
     Indication: Product used for unknown indication
     Dosage: UNK
     Route: 048
     Dates: end: 20171027
  72. APREPITANT [Concomitant]
     Active Substance: APREPITANT
     Indication: Prophylaxis
     Dosage: UNK
     Route: 065
     Dates: start: 20150527, end: 20150905
  73. CYCLIZINE [Concomitant]
     Active Substance: CYCLIZINE
     Indication: Prophylaxis
     Dosage: 50 MG,  (0.33 DAY)
     Route: 048
  74. CYCLIZINE [Concomitant]
     Active Substance: CYCLIZINE
     Dosage: 50 MG PRN (PROPHYLACTIC CHEMO RELATED TO NAUSEA)
     Route: 048
     Dates: start: 20150603
  75. CYCLIZINE [Concomitant]
     Active Substance: CYCLIZINE
     Dosage: 150 MG, QD (1/DAY)
     Route: 048
     Dates: start: 20150603, end: 20150715
  76. LANSOPRAZOLE [Concomitant]
     Active Substance: LANSOPRAZOLE
     Indication: Prophylaxis
     Dosage: UNK, UNKNOWN
     Route: 048
     Dates: start: 20150504, end: 20171027
  77. METOCLOPRAMIDE [Concomitant]
     Active Substance: METOCLOPRAMIDE
     Indication: Product used for unknown indication
     Dosage: UNK UNK, BID
     Route: 042
     Dates: start: 20150506, end: 20150903
  78. METOCLOPRAMIDE [Concomitant]
     Active Substance: METOCLOPRAMIDE
     Dosage: UNK
     Route: 048
     Dates: start: 20170815, end: 2017
  79. METOCLOPRAMIDE [Concomitant]
     Active Substance: METOCLOPRAMIDE
     Dosage: 2 DF, QD (1/DAY)
     Route: 048
     Dates: start: 20170301, end: 2017
  80. METOCLOPRAMIDE [Concomitant]
     Active Substance: METOCLOPRAMIDE
     Dosage: UNK (SUBSEQUENT DOSE RECEIVED ON 18/NOV/2016)
     Route: 048
     Dates: start: 20150506, end: 2016
  81. METOCLOPRAMIDE [Concomitant]
     Active Substance: METOCLOPRAMIDE
     Dosage: UNK, BID
     Route: 048
     Dates: start: 20170301, end: 2017
  82. METOCLOPRAMIDE [Concomitant]
     Active Substance: METOCLOPRAMIDE
     Dosage: 2 DF, QD (UNTIL 2017)
     Route: 048
     Dates: start: 20170815
  83. METOCLOPRAMIDE [Concomitant]
     Active Substance: METOCLOPRAMIDE
     Dosage: UNK
     Route: 048
  84. NITROFURANTOIN [Concomitant]
     Active Substance: NITROFURANTOIN
     Indication: Product used for unknown indication
     Dosage: UNK
     Route: 065
     Dates: start: 20170621, end: 20170623
  85. BECLOMETHASONE DIPROPIONATE [Concomitant]
     Active Substance: BECLOMETHASONE DIPROPIONATE
     Indication: Wheezing
     Dosage: (FORMULATION: SUSPENSION AND SOLUTION FOR SPRAY)
     Route: 050
     Dates: end: 20160108
  86. ONDANSETRON [Concomitant]
     Active Substance: ONDANSETRON
     Indication: Product used for unknown indication
     Dosage: UNK
     Route: 048
     Dates: start: 20150508, end: 20150904
  87. ONDANSETRON [Concomitant]
     Active Substance: ONDANSETRON
     Dosage: UNK
     Route: 048
     Dates: start: 20161111, end: 2016
  88. PEGFILGRASTIM [Concomitant]
     Active Substance: PEGFILGRASTIM
     Indication: Product used for unknown indication
     Dosage: UNK, UNKNOWN
     Route: 058
     Dates: start: 20150506, end: 20150903
  89. VENTOLIN [Concomitant]
     Active Substance: ALBUTEROL SULFATE
     Indication: Wheezing
     Dosage: UNK
     Route: 065
     Dates: start: 20170621, end: 2017
  90. FLUCONAZOLE [Concomitant]
     Active Substance: FLUCONAZOLE
     Indication: Product used for unknown indication
     Dosage: UNK
     Route: 048
     Dates: start: 20171004, end: 20171004
  91. CALCIUM GLUCONATE [Concomitant]
     Active Substance: CALCIUM GLUCONATE
     Indication: Product used for unknown indication
     Dosage: UNK
     Route: 065
     Dates: end: 20170201
  92. FLUCLOXACILLIN [Concomitant]
     Active Substance: FLUCLOXACILLIN
     Indication: Nail infection
     Dosage: 2250 MG, QD (250 MG, TID (3/DAY))
     Route: 048
     Dates: start: 20150603, end: 20150610
  93. FLUCLOXACILLIN [Concomitant]
     Active Substance: FLUCLOXACILLIN
     Dosage: 750 MG, QD (1/DAY)
     Route: 048
  94. LOSARTAN [Concomitant]
     Active Substance: LOSARTAN
     Indication: Palpitations
     Dosage: 50 MG
     Route: 048
     Dates: start: 20160602, end: 20171027
  95. KEPPRA [Concomitant]
     Active Substance: LEVETIRACETAM
     Indication: Muscle twitching
     Dosage: UNK UNK, Q12H (BID (2/DAY)
     Route: 048
     Dates: start: 20160727, end: 20160810
  96. KEPPRA [Concomitant]
     Active Substance: LEVETIRACETAM
     Dosage: UNK, Q12H (BID (2/DAY)
     Route: 048
     Dates: start: 20160811, end: 20161027
  97. HYDROCORTISONE [Concomitant]
     Active Substance: HYDROCORTISONE
     Indication: Rash
     Dosage: LOTION APPLICATION
     Route: 061
     Dates: start: 20150725, end: 20150802
  98. QUININE SULFATE [Concomitant]
     Active Substance: QUININE SULFATE
     Indication: Muscle spasms
     Dosage: 200 MG
     Route: 048
     Dates: start: 20161123, end: 20171027
  99. CHLORPHENIRAMINE MALEATE [Concomitant]
     Active Substance: CHLORPHENIRAMINE MALEATE
     Indication: Rash
     Dosage: 5 MG
     Route: 048
     Dates: start: 20150725, end: 20151021
  100. CALAMINE [Concomitant]
     Active Substance: CALAMINE\FERRIC OXIDE RED\ZINC OXIDE
     Indication: Rash
     Dosage: 1 DF, PRN (LOTION, 1 APPLICATION, AS NEEDED)
     Route: 061
     Dates: start: 20150915, end: 20151021
  101. BISOPROLOL [Concomitant]
     Active Substance: BISOPROLOL
     Indication: Palpitations
     Dosage: 1.25 MG
     Route: 048
     Dates: start: 20160602, end: 20171027

REACTIONS (14)
  - Hiccups [Not Recovered/Not Resolved]
  - Urinary tract infection [Recovered/Resolved]
  - Fatigue [Not Recovered/Not Resolved]
  - Nausea [Recovered/Resolved]
  - Constipation [Recovered/Resolved]
  - Chest pain [Recovered/Resolved]
  - Headache [Recovered/Resolved]
  - Poor peripheral circulation [Unknown]
  - Abdominal pain [Unknown]
  - Diarrhoea [Recovered/Resolved]
  - Headache [Recovered/Resolved]
  - Cough [Recovered/Resolved]
  - Lacrimation increased [Not Recovered/Not Resolved]
  - Oropharyngeal pain [Recovered/Resolved]

NARRATIVE: CASE EVENT DATE: 20150904
